FAERS Safety Report 8968845 (Version 1)
Quarter: 2012Q4

REPORT INFORMATION
  Report Type: 
  Country: US (occurrence: US)
  Receive Date: 20121218
  Receipt Date: 20121218
  Transmission Date: 20130627
  Serious: No
  Sender: FDA-Public Use
  Company Number: US-BRISTOL-MYERS SQUIBB COMPANY-16365405

PATIENT
  Age: 47 Year
  Sex: Female
  Weight: 108 kg

DRUGS (2)
  1. ABILIFY [Suspect]
     Indication: DEPRESSION
     Dosage: Started 1 year ago dose at 5 mg/day
  2. PAXIL [Suspect]
     Indication: DEPRESSION
     Dosage: Dose increased to 60mg

REACTIONS (1)
  - Depression [Unknown]
